FAERS Safety Report 4589280-X (Version None)
Quarter: 2005Q1

REPORT INFORMATION
  Report Type: 
  Country: None (occurrence: None)
  Receive Date: 20050223
  Receipt Date: 20050214
  Transmission Date: 20050727
  Serious: Yes (Hospitalization)
  Sender: FDA-Public Use
  Company Number: FR-ABBOTT-05P-056-0290674-00

PATIENT
  Age: 19 Year
  Sex: Female

DRUGS (3)
  1. ZECLAR TABLETS [Suspect]
     Indication: HELICOBACTER INFECTION
     Route: 048
     Dates: start: 20041220, end: 20041226
  2. ESOMEPRAZOLE [Suspect]
     Indication: HELICOBACTER INFECTION
     Route: 048
     Dates: start: 20041220, end: 20050117
  3. AMOXICILLIN [Suspect]
     Indication: HELICOBACTER INFECTION
     Route: 048
     Dates: start: 20041220, end: 20041226

REACTIONS (3)
  - DYSPNOEA EXERTIONAL [None]
  - PETECHIAE [None]
  - THROMBOTIC THROMBOCYTOPENIC PURPURA [None]
